FAERS Safety Report 23554252 (Version 3)
Quarter: 2024Q1

REPORT INFORMATION
  Report Type: Spontaneous
  Country: US (occurrence: US)
  Receive Date: 20240222
  Receipt Date: 20240328
  Transmission Date: 20240410
  Serious: No
  Sender: FDA-Public Use
  Company Number: US-Calliditas-2024CAL00236

PATIENT
  Age: 52 Year
  Sex: Female

DRUGS (6)
  1. TARPEYO [Suspect]
     Active Substance: BUDESONIDE
     Indication: IgA nephropathy
     Dosage: 16 MG (4 MG CAPSULES) ONCE DAILY
     Route: 048
     Dates: start: 20240114
  2. FAMOTIDINE [Concomitant]
     Active Substance: FAMOTIDINE
  3. KETOCONAZOLE [Concomitant]
     Active Substance: KETOCONAZOLE
  4. EZETIMIBE\SIMVASTATIN [Concomitant]
     Active Substance: EZETIMIBE\SIMVASTATIN
  5. LOSARTAN [Concomitant]
     Active Substance: LOSARTAN
  6. VITAMIN D NOS [Concomitant]
     Active Substance: VITAMIN D NOS

REACTIONS (3)
  - Weight increased [Not Recovered/Not Resolved]
  - Hunger [Not Recovered/Not Resolved]
  - Otitis media acute [Not Recovered/Not Resolved]

NARRATIVE: CASE EVENT DATE: 20240131
